FAERS Safety Report 15573674 (Version 1)
Quarter: 2018Q4

REPORT INFORMATION
  Report Type: Spontaneous
  Country: IT (occurrence: IT)
  Receive Date: 20181101
  Receipt Date: 20181101
  Transmission Date: 20190205
  Serious: Yes (Other)
  Sender: FDA-Public Use
  Company Number: IT-AUROBINDO-AUR-APL-2018-052871

PATIENT
  Age: 41 Year
  Sex: Female

DRUGS (1)
  1. LEVOFLOXACIN FILMCOATED TABLET [Suspect]
     Active Substance: LEVOFLOXACIN
     Indication: CYSTITIS
     Dosage: 500 MG, TOTAL ; IN TOTAL
     Route: 048
     Dates: start: 20180820, end: 20180820

REACTIONS (7)
  - Dermatitis allergic [Recovering/Resolving]
  - Sensation of foreign body [Recovering/Resolving]
  - Dysphonia [Recovering/Resolving]
  - Rhonchi [Recovering/Resolving]
  - Dyspnoea [Recovering/Resolving]
  - Laryngeal oedema [Recovering/Resolving]
  - Cough [Recovering/Resolving]

NARRATIVE: CASE EVENT DATE: 20180820
